FAERS Safety Report 20985731 (Version 2)
Quarter: 2022Q3

REPORT INFORMATION
  Report Type: Spontaneous
  Country: ES (occurrence: ES)
  Receive Date: 20220621
  Receipt Date: 20220906
  Transmission Date: 20221027
  Serious: Yes (Hospitalization, Other)
  Sender: FDA-Public Use
  Company Number: ES-SA-2022SA206139

PATIENT
  Age: 65 Year
  Sex: Male
  Weight: 63.1 kg

DRUGS (15)
  1. IRINOTECAN [Suspect]
     Active Substance: IRINOTECAN
     Indication: Pancreatic carcinoma
     Dosage: 150 MILLIGRAM (150 MG,DAYS 1, AND 15 OF EACH 28 DAY CYCLE)
     Route: 042
     Dates: start: 20220425
  2. OXALIPLATIN [Suspect]
     Active Substance: OXALIPLATIN
     Indication: Pancreatic carcinoma
     Dosage: 85 MICROGRAM (85 UG/KG,1 IN 2 WK)
     Route: 042
     Dates: start: 20220425
  3. BUDIGALIMAB [Suspect]
     Active Substance: BUDIGALIMAB
     Indication: Pancreatic carcinoma
     Dosage: 500 MILLIGRAM, 4 WEEK
     Route: 042
     Dates: start: 20220427
  4. ABBV-151 [Suspect]
     Active Substance: ABBV-151
     Indication: Pancreatic carcinoma
     Dosage: 500 MILLIGRAM, 1 IN 4 WK
     Route: 042
     Dates: start: 20220427
  5. LEUCOVORIN [Suspect]
     Active Substance: LEUCOVORIN
     Indication: Pancreatic carcinoma
     Dosage: 400 MILLIGRAM (400 MG/M2,1 IN 2 WK))
     Route: 042
     Dates: start: 20220425
  6. FLUOROURACIL SODIUM [Suspect]
     Active Substance: FLUOROURACIL SODIUM
     Indication: Pancreatic carcinoma
     Dosage: 2400 MILLIGRAM (2400 MG/M2,1 IN 2 WK))
     Route: 042
     Dates: start: 20220425
  7. GILORALIMAB [Suspect]
     Active Substance: GILORALIMAB
     Indication: Pancreatic carcinoma
     Dosage: UNK (0.1 MG/KG,1 IN 4 WK)
     Route: 042
     Dates: start: 20220427
  8. METOCLOPRAMIDE HYDROCHLORIDE [Suspect]
     Active Substance: METOCLOPRAMIDE HYDROCHLORIDE
     Indication: Product used for unknown indication
     Dosage: UNK
     Route: 065
  9. OMEPRAZOLE [Concomitant]
     Active Substance: OMEPRAZOLE
     Indication: Gastric disorder
     Dosage: 40 MILLIGRAM, ONCE A DAY
     Route: 065
     Dates: start: 20220420
  10. PANCRELIPASE [Concomitant]
     Active Substance: PANCRELIPASE
     Indication: Pancreatic failure
     Dosage: 2500 INTERNATIONAL UNIT, FOUR TIMES/DAY
     Route: 048
     Dates: start: 20220420
  11. VITAMIN D [Concomitant]
     Active Substance: VITAMIN D NOS
     Indication: Osteoporosis
     Dosage: 1 DOSAGE FORM, ONCE A DAY
     Route: 048
     Dates: start: 20220420
  12. METFORMIN [Concomitant]
     Active Substance: METFORMIN HYDROCHLORIDE
     Indication: Diabetes mellitus
     Dosage: 1700 MILLIGRAM, TWO TIMES A DAY
     Route: 048
     Dates: start: 20220420
  13. ATORVASTATIN [Concomitant]
     Active Substance: ATORVASTATIN
     Indication: Dyslipidaemia
     Dosage: 20 MILLIGRAM, ONCE A DAY
     Route: 065
     Dates: start: 20220422
  14. FERROUS SULFATE [Concomitant]
     Active Substance: FERROUS SULFATE
     Indication: Anaemia
     Dosage: 1 DOSAGE FORM, ONCE A DAY
     Route: 048
     Dates: start: 20220422
  15. LANTUS [Concomitant]
     Active Substance: INSULIN GLARGINE
     Indication: Diabetes mellitus
     Dosage: 14 INTERNATIONAL UNIT, ONCE A DAY
     Route: 058
     Dates: start: 20220420

REACTIONS (4)
  - Hypokalaemia [Recovered/Resolved]
  - Febrile neutropenia [Recovered/Resolved]
  - Diarrhoea [Recovered/Resolved]
  - Mucosal inflammation [Recovered/Resolved]

NARRATIVE: CASE EVENT DATE: 20220518
